FAERS Safety Report 8553167-8 (Version None)
Quarter: 2012Q3

REPORT INFORMATION
  Report Type: 
  Country: None (occurrence: None)
  Receive Date: 20120731
  Receipt Date: 20120724
  Transmission Date: 20120928
  Serious: Yes (Hospitalization)
  Sender: FDA-Public Use
  Company Number: US-PFIZER INC-2012180028

PATIENT
  Sex: Male

DRUGS (1)
  1. VFEND [Suspect]
     Indication: PANCREATIC DISORDER
     Dosage: 300 MG, 2X/DAY
     Dates: start: 20120618

REACTIONS (1)
  - CARDIAC DISORDER [None]
